FAERS Safety Report 18619000 (Version 1)
Quarter: 2020Q4

REPORT INFORMATION
  Report Type: Report from Study
  Country: US (occurrence: US)
  Receive Date: 20201215
  Receipt Date: 20201215
  Transmission Date: 20210114
  Serious: Yes (Death, Hospitalization)
  Sender: FDA-Public Use
  Company Number: US-MYLANLABS-2020M1101967

PATIENT
  Age: 77 Year
  Sex: Male

DRUGS (7)
  1. VORICONAZOLE. [Suspect]
     Active Substance: VORICONAZOLE
     Indication: BRONCHOPULMONARY ASPERGILLOSIS
     Route: 065
  2. VANCOMYCIN [Concomitant]
     Active Substance: VANCOMYCIN
     Indication: ANTIBIOTIC THERAPY
     Route: 065
  3. MEROPENEM. [Concomitant]
     Active Substance: MEROPENEM
     Indication: ANTIBIOTIC THERAPY
     Route: 065
  4. TOCILIZUMAB. [Suspect]
     Active Substance: TOCILIZUMAB
     Indication: COVID-19
     Route: 065
  5. VANCOMYCIN [Concomitant]
     Active Substance: VANCOMYCIN
     Indication: STAPHYLOCOCCAL BACTERAEMIA
  6. PREDNISONE. [Suspect]
     Active Substance: PREDNISONE
     Indication: COVID-19
     Route: 065
  7. VORICONAZOLE. [Suspect]
     Active Substance: VORICONAZOLE
     Indication: BRONCHOPULMONARY ASPERGILLOSIS

REACTIONS (10)
  - Respiratory failure [Fatal]
  - Hypoxia [Fatal]
  - Off label use [Fatal]
  - Bronchopulmonary aspergillosis [Fatal]
  - Drug ineffective [Fatal]
  - Metabolic encephalopathy [Fatal]
  - Pneumonia staphylococcal [Fatal]
  - Multiple organ dysfunction syndrome [Fatal]
  - Chronic respiratory failure [Fatal]
  - Pneumonia [Fatal]
